FAERS Safety Report 20086028 (Version 1)
Quarter: 2021Q4

REPORT INFORMATION
  Report Type: Spontaneous
  Country: US (occurrence: None)
  Receive Date: 20211117
  Receipt Date: 20211117
  Transmission Date: 20220303
  Serious: Yes (Death)
  Sender: FDA-Public Use
  Company Number: None

PATIENT
  Age: 66 Year
  Sex: Female

DRUGS (1)
  1. LENVIMA [Suspect]
     Active Substance: LENVATINIB
     Dosage: FREQUENCY : ONCE;?
     Dates: start: 20210527, end: 20210827

REACTIONS (1)
  - Death [None]

NARRATIVE: CASE EVENT DATE: 20210901
